FAERS Safety Report 14948569 (Version 2)
Quarter: 2018Q2

REPORT INFORMATION
  Report Type: Report from Study
  Country: CZ (occurrence: CZ)
  Receive Date: 20180529
  Receipt Date: 20180604
  Transmission Date: 20180711
  Serious: Yes (Hospitalization)
  Sender: FDA-Public Use
  Company Number: CZ-PFIZER INC-2018211986

PATIENT
  Age: 69 Year
  Sex: Male

DRUGS (19)
  1. CALCIUM FOLINATE [Suspect]
     Active Substance: LEUCOVORIN CALCIUM
     Dosage: 740 MG, CYCLIC
     Route: 041
     Dates: start: 20160126, end: 20160126
  2. DEGAN [Concomitant]
     Active Substance: METOCLOPRAMIDE HYDROCHLORIDE
     Indication: PROPHYLAXIS
     Dosage: UNK
     Route: 065
     Dates: start: 20160112, end: 20160112
  3. CALCIUM FOLINATE [Suspect]
     Active Substance: LEUCOVORIN CALCIUM
     Indication: COLORECTAL CANCER METASTATIC
     Dosage: 740 MG, CYCLIC
     Route: 041
     Dates: start: 20151022, end: 20151022
  4. DEGAN [Concomitant]
     Active Substance: METOCLOPRAMIDE HYDROCHLORIDE
     Dosage: UNK
  5. FLUOROURACIL. [Suspect]
     Active Substance: FLUOROURACIL
     Dosage: UNK
  6. IRINOTECAN HCL [Suspect]
     Active Substance: IRINOTECAN HYDROCHLORIDE
     Indication: COLORECTAL CANCER METASTATIC
     Dosage: 249 MG, CYCLIC
     Route: 041
     Dates: start: 20151022, end: 20151022
  7. EMEND [Concomitant]
     Active Substance: APREPITANT
     Indication: PROPHYLAXIS
     Dosage: UNK
     Route: 065
     Dates: start: 20160112, end: 20160114
  8. EMEND [Concomitant]
     Active Substance: APREPITANT
     Dosage: UNK
     Route: 065
     Dates: start: 20160126
  9. FLUOROURACIL. [Suspect]
     Active Substance: FLUOROURACIL
     Dosage: 2208 MG, CYCLIC
     Route: 041
     Dates: start: 20160126
  10. OMEPRAZOLUM [Concomitant]
     Dosage: UNK
     Route: 065
     Dates: start: 20160126, end: 20160126
  11. EMEND [Concomitant]
     Active Substance: APREPITANT
     Dosage: UNK
  12. OMEPRAZOLUM [Concomitant]
     Dosage: UNK
     Route: 065
     Dates: start: 20160112, end: 20160112
  13. ZALTRAP [Suspect]
     Active Substance: ZIV-AFLIBERCEPT
     Indication: COLORECTAL CANCER METASTATIC
     Dosage: 210 MG, CYCLIC
     Route: 041
     Dates: start: 20151022, end: 20151022
  14. EUTHYROX [Concomitant]
     Active Substance: LEVOTHYROXINE SODIUM
     Route: 065
     Dates: start: 2005
  15. DEGAN [Concomitant]
     Active Substance: METOCLOPRAMIDE HYDROCHLORIDE
     Dosage: UNK
     Route: 065
     Dates: start: 20160126, end: 20160126
  16. FLUOROURACIL. [Suspect]
     Active Substance: FLUOROURACIL
     Indication: COLORECTAL CANCER METASTATIC
     Dosage: 1110 MG, CYCLIC
     Route: 040
     Dates: start: 20151022, end: 20151022
  17. FLUOROURACIL. [Suspect]
     Active Substance: FLUOROURACIL
     Dosage: 1650 MG, CYCLIC
     Route: 041
     Dates: start: 20151022
  18. IRINOTECAN HCL [Suspect]
     Active Substance: IRINOTECAN HYDROCHLORIDE
     Dosage: 331.2 MG, CYCLIC
     Route: 041
     Dates: start: 20160126, end: 20160126
  19. FLUOROURACIL. [Suspect]
     Active Substance: FLUOROURACIL
     Dosage: 1472 MG, CYCLIC
     Route: 040
     Dates: start: 20160126, end: 20160126

REACTIONS (4)
  - Eye haemorrhage [Recovered/Resolved]
  - Condition aggravated [Not Recovered/Not Resolved]
  - Neuropathy peripheral [Not Recovered/Not Resolved]
  - Bronchitis [Recovered/Resolved]

NARRATIVE: CASE EVENT DATE: 20160126
